FAERS Safety Report 4648750-6 (Version None)
Quarter: 2005Q2

REPORT INFORMATION
  Report Type: 
  Country: None (occurrence: None)
  Receive Date: 20050429
  Receipt Date: 20040812
  Transmission Date: 20051028
  Serious: No
  Sender: FDA-Public Use
  Company Number: US-GLAXOSMITHKLINE-A0521974A

PATIENT
  Age: 81 Year
  Sex: Male

DRUGS (3)
  1. LEUKERAN [Suspect]
     Route: 048
     Dates: start: 20000101, end: 20031001
  2. LIPITOR [Concomitant]
  3. ATENOLOL [Concomitant]

REACTIONS (4)
  - FEELING HOT [None]
  - NAUSEA [None]
  - PRURITUS [None]
  - RASH [None]
